FAERS Safety Report 9104055 (Version 2)
Quarter: 2013Q1

REPORT INFORMATION
  Report Type: Report from Study
  Country: GR (occurrence: GR)
  Receive Date: 20130219
  Receipt Date: 20130327
  Transmission Date: 20140127
  Serious: Yes (Other)
  Sender: FDA-Public Use
  Company Number: GR-BRISTOL-MYERS SQUIBB COMPANY-17378712

PATIENT
  Age: 56 Year
  Sex: Male

DRUGS (1)
  1. YERVOY [Suspect]
     Indication: MALIGNANT MELANOMA
     Dosage: CYCLE LENGTH:3 WEEKS;?NO OF CYC: 4TH
     Dates: start: 201207

REACTIONS (8)
  - Hepatitis [Unknown]
  - Cardiotoxicity [Unknown]
  - Colitis [Unknown]
  - Neurotoxicity [Unknown]
  - Nausea [Unknown]
  - Stomatitis [Unknown]
  - Rash pruritic [Unknown]
  - Vomiting [Unknown]
